FAERS Safety Report 13455028 (Version 2)
Quarter: 2017Q2

REPORT INFORMATION
  Report Type: Spontaneous
  Country: CN (occurrence: CN)
  Receive Date: 20170418
  Receipt Date: 20170516
  Transmission Date: 20170830
  Serious: Yes (Life-Threatening, Hospitalization, Other)
  Sender: FDA-Public Use
  Company Number: CN-SA-2017SA060491

PATIENT
  Age: 9 Year
  Sex: Female

DRUGS (10)
  1. ETANERCEPT [Suspect]
     Active Substance: ETANERCEPT
     Indication: JUVENILE IDIOPATHIC ARTHRITIS
     Route: 065
  2. NAPROXEN. [Suspect]
     Active Substance: NAPROXEN
     Indication: JUVENILE IDIOPATHIC ARTHRITIS
     Route: 065
  3. CYCLOSPORIN A [Suspect]
     Active Substance: CYCLOSPORINE
     Indication: HISTIOCYTOSIS HAEMATOPHAGIC
     Route: 048
  4. PREDNISONE. [Suspect]
     Active Substance: PREDNISONE
     Indication: JUVENILE IDIOPATHIC ARTHRITIS
     Route: 065
  5. PREDNISONE. [Suspect]
     Active Substance: PREDNISONE
     Indication: JUVENILE IDIOPATHIC ARTHRITIS
     Route: 065
  6. METHYLPREDNISOLONE HYDROGEN SUCCINATE [Suspect]
     Active Substance: METHYLPREDNISOLONE HEMISUCCINATE
     Indication: JUVENILE IDIOPATHIC ARTHRITIS
     Route: 065
  7. METHOTREXATE. [Suspect]
     Active Substance: METHOTREXATE
     Indication: JUVENILE IDIOPATHIC ARTHRITIS
     Route: 065
  8. LEFLUNOMIDE. [Suspect]
     Active Substance: LEFLUNOMIDE
     Indication: JUVENILE IDIOPATHIC ARTHRITIS
     Route: 065
  9. METHYLPREDNISOLONE HYDROGEN SUCCINATE [Suspect]
     Active Substance: METHYLPREDNISOLONE HEMISUCCINATE
     Indication: HISTIOCYTOSIS HAEMATOPHAGIC
     Route: 065
  10. CYCLOSPORIN A [Suspect]
     Active Substance: CYCLOSPORINE
     Indication: JUVENILE IDIOPATHIC ARTHRITIS
     Route: 048

REACTIONS (24)
  - Platelet count decreased [Recovered/Resolved]
  - Red blood cell sedimentation rate increased [Recovered/Resolved]
  - Blood fibrinogen increased [Recovered/Resolved]
  - Histiocytosis haematophagic [Recovered/Resolved]
  - Blood pressure decreased [Recovered/Resolved]
  - Pyrexia [Unknown]
  - Heart rate increased [Recovered/Resolved]
  - Drug ineffective [Unknown]
  - White blood cell count increased [Unknown]
  - Cushingoid [Unknown]
  - Breath sounds abnormal [Unknown]
  - Respiratory rate increased [Unknown]
  - Natural killer cell count decreased [Recovered/Resolved]
  - Liver injury [Unknown]
  - Dyspnoea [Unknown]
  - C-reactive protein increased [Recovered/Resolved]
  - Activated partial thromboplastin time prolonged [Recovered/Resolved]
  - Lung infiltration [Unknown]
  - Neutrophil count increased [Unknown]
  - Serum ferritin increased [Recovered/Resolved]
  - Blood lactate dehydrogenase increased [Recovered/Resolved]
  - Procalcitonin increased [Recovered/Resolved]
  - Pneumonia [Unknown]
  - Hepatic enzyme increased [Unknown]
